FAERS Safety Report 14944695 (Version 1)
Quarter: 2018Q2

REPORT INFORMATION
  Report Type: Spontaneous
  Country: DE (occurrence: DE)
  Receive Date: 20180529
  Receipt Date: 20180529
  Transmission Date: 20180711
  Serious: Yes (Hospitalization)
  Sender: FDA-Public Use
  Company Number: DE-CONCORDIA PHARMACEUTICALS INC.-GSH201804-001435

PATIENT
  Age: 61 Year
  Sex: Female

DRUGS (6)
  1. ROCALTROL [Concomitant]
     Active Substance: CALCITRIOL
  2. HYDROXYCHLOROQUINE 200 MG TABLET [Suspect]
     Active Substance: HYDROXYCHLOROQUINE
     Indication: PRODUCT USED FOR UNKNOWN INDICATION
     Route: 048
  3. EUTHYROX [Concomitant]
     Active Substance: LEVOTHYROXINE SODIUM
  4. FORMOTEROL [Concomitant]
     Active Substance: FORMOTEROL
  5. TRAMADOL. [Concomitant]
     Active Substance: TRAMADOL
  6. VIGANTOLETTEN [Concomitant]
     Active Substance: CHOLECALCIFEROL

REACTIONS (2)
  - Chest discomfort [Unknown]
  - Cough [Unknown]
